FAERS Safety Report 24681286 (Version 1)
Quarter: 2024Q4

REPORT INFORMATION
  Report Type: Spontaneous
  Country: US (occurrence: US)
  Receive Date: 20241129
  Receipt Date: 20241129
  Transmission Date: 20250115
  Serious: No
  Sender: ALEXION PHARMACEUTICALS
  Company Number: US-AstraZeneca-CH-00753935AP

PATIENT

DRUGS (2)
  1. BREZTRI [Suspect]
     Active Substance: BUDESONIDE\FORMOTEROL\GLYCOPYRROLATE
  2. BREZTRI [Suspect]
     Active Substance: BUDESONIDE\FORMOTEROL\GLYCOPYRROLATE

REACTIONS (13)
  - Device malfunction [Unknown]
  - Incorrect dose administered [Unknown]
  - Device malfunction [Unknown]
  - Malaise [Unknown]
  - Dyspnoea [Unknown]
  - Hypokinesia [Unknown]
  - Sluggishness [Unknown]
  - Chest discomfort [Unknown]
  - Sitting disability [Unknown]
  - Body temperature [Unknown]
  - Product dose omission issue [Unknown]
  - Product use issue [Unknown]
  - Device leakage [Recovered/Resolved]
